FAERS Safety Report 8954922 (Version 2)
Quarter: 2012Q4

REPORT INFORMATION
  Report Type: 
  Country: US (occurrence: US)
  Receive Date: 20121207
  Receipt Date: 20121220
  Transmission Date: 20130627
  Serious: Yes (Other)
  Sender: FDA-Public Use
  Company Number: CHPA2012US024974

PATIENT
  Age: 58 Year
  Sex: Female

DRUGS (1)
  1. VOLTAREN GEL [Suspect]
     Indication: ARTHRITIS
     Dosage: 2 g, ONCE/SINGLE
     Route: 061
     Dates: start: 20121204, end: 20121204

REACTIONS (2)
  - Cardiac flutter [Not Recovered/Not Resolved]
  - Underdose [Unknown]
